FAERS Safety Report 18342396 (Version 5)
Quarter: 2021Q2

REPORT INFORMATION
  Report Type: Report from Study
  Country: US (occurrence: US)
  Receive Date: 20201005
  Receipt Date: 20210504
  Transmission Date: 20210717
  Serious: Yes (Hospitalization, Other)
  Sender: FDA-Public Use
  Company Number: US-GLAXOSMITHKLINE-US2020AMR037772

PATIENT
  Age: 78 Year
  Sex: Female

DRUGS (12)
  1. NIRAPARIB [Suspect]
     Active Substance: NIRAPARIB
     Dosage: 300 MG, QD
  2. NIRAPARIB [Suspect]
     Active Substance: NIRAPARIB
     Dosage: 300 MG, QD
  3. NIRAPARIB [Suspect]
     Active Substance: NIRAPARIB
     Dosage: 300 MG, QD
     Dates: end: 20200205
  4. NIRAPARIB [Suspect]
     Active Substance: NIRAPARIB
     Dosage: 300 MG, QD
     Dates: start: 20200208
  5. NIRAPARIB [Suspect]
     Active Substance: NIRAPARIB
     Dosage: 300 MG, QD
  6. NIRAPARIB [Suspect]
     Active Substance: NIRAPARIB
     Dosage: 300 MG, QD
  7. NIRAPARIB [Suspect]
     Active Substance: NIRAPARIB
     Dosage: 300 MG, QD
  8. NIRAPARIB [Suspect]
     Active Substance: NIRAPARIB
     Dosage: 300 MG, QD
  9. NIRAPARIB [Suspect]
     Active Substance: NIRAPARIB
     Dosage: 300 MG, QD
  10. NIRAPARIB [Suspect]
     Active Substance: NIRAPARIB
     Indication: FALLOPIAN TUBE CANCER
     Dosage: 300 MG, QD
     Dates: start: 20191206
  11. NIRAPARIB [Suspect]
     Active Substance: NIRAPARIB
     Dosage: 300 MG, QD
     Dates: start: 20200208
  12. AVASTIN [Suspect]
     Active Substance: BEVACIZUMAB
     Indication: PRODUCT USED FOR UNKNOWN INDICATION
     Dosage: UNK (Q3WEEKS)
     Route: 042
     Dates: start: 20201127

REACTIONS (13)
  - Lymphoma [Unknown]
  - Epistaxis [Not Recovered/Not Resolved]
  - Neoplasm [Unknown]
  - Blood pressure increased [Recovering/Resolving]
  - Blood creatinine increased [Unknown]
  - Hyperhidrosis [Unknown]
  - Fatigue [Not Recovered/Not Resolved]
  - Computerised tomogram abnormal [Unknown]
  - Lymphoedema [Unknown]
  - Lymphadenectomy [Unknown]
  - Lymph nodes scan abnormal [Unknown]
  - Product dose omission issue [Unknown]
  - Constipation [Recovered/Resolved]

NARRATIVE: CASE EVENT DATE: 20210111
